FAERS Safety Report 20514108 (Version 1)
Quarter: 2022Q1

REPORT INFORMATION
  Report Type: Spontaneous
  Country: US (occurrence: US)
  Receive Date: 20220224
  Receipt Date: 20220224
  Transmission Date: 20220423
  Serious: No
  Sender: FDA-Public Use
  Company Number: US-AMNEAL PHARMACEUTICALS-2021-AMRX-04369

PATIENT
  Sex: Male

DRUGS (1)
  1. RYTARY [Suspect]
     Active Substance: CARBIDOPA\LEVODOPA
     Indication: Product used for unknown indication
     Dosage: 1 CAPSULES, 4X/DAY
     Route: 048

REACTIONS (5)
  - Depression [Unknown]
  - Blood pressure increased [Unknown]
  - Confusional state [Unknown]
  - Binge eating [Unknown]
  - Psychotic disorder [Unknown]
